FAERS Safety Report 8150653-X (Version None)
Quarter: 2012Q1

REPORT INFORMATION
  Report Type: 
  Country: None (occurrence: None)
  Receive Date: 20120220
  Receipt Date: 20120206
  Transmission Date: 20120608
  Serious: Yes (Other)
  Sender: FDA-Public Use
  Company Number: PHHY2012DE006429

PATIENT
  Age: 72 Year
  Sex: Female

DRUGS (1)
  1. FEMARA [Suspect]
     Dosage: 2.5 MG, UNK
     Route: 048

REACTIONS (2)
  - STREPTOCOCCAL INFECTION [None]
  - NAIL INFECTION [None]
